FAERS Safety Report 6906618-6 (Version None)
Quarter: 2010Q3

REPORT INFORMATION
  Report Type: 
  Country: None (occurrence: None)
  Receive Date: 20100804
  Receipt Date: 20100727
  Transmission Date: 20110219
  Serious: Yes (Hospitalization)
  Sender: FDA-Public Use
  Company Number: US-GILEAD-2010-0029892

PATIENT
  Sex: Female
  Weight: 106.24 kg

DRUGS (12)
  1. LETAIRIS [Suspect]
     Indication: PULMONARY ARTERIAL HYPERTENSION
     Route: 048
     Dates: start: 20081222
  2. TRACLEER [Concomitant]
     Route: 048
     Dates: start: 20080819
  3. LASIX [Concomitant]
  4. CELLCEPT [Concomitant]
  5. TRAMADOL HYDROCHLORIDE [Concomitant]
  6. LIDODERM [Concomitant]
  7. ASPIRIN [Concomitant]
  8. VITAMIN D [Concomitant]
  9. FOLIC ACID [Concomitant]
  10. SYNTHROID [Concomitant]
  11. FIORICET [Concomitant]
  12. OXYGEN [Concomitant]

REACTIONS (7)
  - DIZZINESS [None]
  - FATIGUE [None]
  - FLUID RETENTION [None]
  - HEADACHE [None]
  - MIGRAINE [None]
  - NAUSEA [None]
  - OEDEMA PERIPHERAL [None]
